FAERS Safety Report 17471397 (Version 1)
Quarter: 2020Q1

REPORT INFORMATION
  Report Type: Spontaneous
  Country: DK (occurrence: DK)
  Receive Date: 20200228
  Receipt Date: 20200228
  Transmission Date: 20200409
  Serious: Yes (Hospitalization)
  Sender: FDA-Public Use
  Company Number: DK-ACCORD-174079

PATIENT
  Age: 44 Year
  Sex: Female
  Weight: 298 kg

DRUGS (14)
  1. ELTROXIN [Concomitant]
     Active Substance: LEVOTHYROXINE
     Indication: HYPOTHYROIDISM
     Dosage: STRENGTH:: 50 UG
     Route: 048
     Dates: start: 202001
  2. SALBUTAMOL [Concomitant]
     Active Substance: ALBUTEROL
     Indication: BRONCHOSPASM
     Dosage: STRENGTH: 1 MG / ML
     Dates: start: 202001
  3. FLIXOTIDE [Concomitant]
     Active Substance: FLUTICASONE PROPIONATE
     Indication: ASTHMA
     Dosage: STRENGTH: 250 UG / DOSE
     Route: 055
     Dates: start: 202001
  4. PANTOPRAZOLE [Concomitant]
     Active Substance: PANTOPRAZOLE
     Indication: GASTROOESOPHAGEAL REFLUX DISEASE
     Dosage: STRENGTH: 20 MG
     Route: 048
     Dates: start: 202001
  5. AIROMIR [Concomitant]
     Active Substance: ALBUTEROL SULFATE
     Indication: ASTHMA
     Dosage: STRENGTH: 0.1 MG / DOSE, DOSAGE: 4 SPRAYS AS NEEDED AT MOST 6 TIMES DAILY
     Route: 055
     Dates: start: 202001
  6. ARIPIPRAZOLE. [Suspect]
     Active Substance: ARIPIPRAZOLE
     Indication: SCHIZOPHRENIA
     Dosage: STRENGTH: 10 MG, 15 MG. DOSAGE: UP TO 30 MG PER DAY.
     Route: 048
     Dates: start: 2009
  7. PALIPERIDONE/PALIPERIDONE PALMITATE [Suspect]
     Active Substance: PALIPERIDONE
     Indication: SCHIZOPHRENIA
     Dosage: STRENGTH: 3 MG DOSAGE: CURRENTLY 3 MG DAILY
     Route: 048
  8. VENTOLINE [Concomitant]
     Active Substance: ALBUTEROL
     Indication: ASTHMA
     Dosage: STRENGTH: 0.2 MG / DISKS
     Route: 055
     Dates: start: 202002
  9. PANODIL [Concomitant]
     Active Substance: ACETAMINOPHEN
     Indication: PAIN
     Dosage: STRENGTH: 500 MG
     Route: 048
     Dates: start: 202001
  10. SPIOLTO RESPIMAT [Concomitant]
     Active Substance: OLODATEROL HYDROCHLORIDE\TIOTROPIUM BROMIDE MONOHYDRATE
     Indication: ASTHMA
     Dosage: STRENGTH: 2.5+2.5 UG
     Route: 055
     Dates: start: 202001
  11. KALEORID [Concomitant]
     Active Substance: POTASSIUM CHLORIDE
     Indication: MINERAL SUPPLEMENTATION
     Dosage: STRENGTH: 750 MG
     Route: 048
     Dates: start: 202001
  12. NICORETTE [Concomitant]
     Active Substance: NICOTINE
     Indication: SMOKING CESSATION THERAPY
     Dosage: STRENGTH: 4 MG, DOSAGE: 1 CHEWING GUM AS NEEDED AT MOST 24 TIMES DAILY
     Route: 048
     Dates: start: 2019
  13. LASIX [Concomitant]
     Active Substance: FUROSEMIDE
     Indication: DIURETIC THERAPY
     Dosage: STRENGTH: 60 MG
     Route: 048
     Dates: start: 202001
  14. LACTULOSE. [Concomitant]
     Active Substance: LACTULOSE
     Indication: CONSTIPATION
     Dosage: STRENGTH: 600 MG / ML, DOSAGE: 15 ML AS NEEDED AT MOST 2 TIMES DAILY
     Route: 048
     Dates: start: 202001

REACTIONS (3)
  - Weight increased [Not Recovered/Not Resolved]
  - Dyspnoea [Not Recovered/Not Resolved]
  - Pickwickian syndrome [Not Recovered/Not Resolved]
